FAERS Safety Report 9518093 (Version 1)
Quarter: 2013Q1

REPORT INFORMATION
  Report Type: Spontaneous
  Country: US (occurrence: None)
  Receive Date: 20130305
  Receipt Date: 20130305
  Transmission Date: 20140127
  Serious: Yes (Hospitalization)
  Sender: FDA-Public Use
  Company Number: 163-21880-12120448

PATIENT
  Age: 84 Year
  Sex: Female

DRUGS (9)
  1. REVLIMID ( LENALIDOMIDE) ( CAPSULES) [Suspect]
     Indication: PLASMA CELL MYELOMA
     Route: 048
     Dates: start: 20120703
  2. ALENDRONATE SODIUM (ALENDRONATE SODIUM) (UNKNOWN) [Concomitant]
  3. CLOPIDOGREL BITARTRATE (CLOPIDOGREL SULFATE) (UNKNOWN) [Concomitant]
  4. GABAPENTIN (GABAPENTIN) (UNKNOWN) (GABAPENTIN) [Concomitant]
  5. HYDROCHLOROTHIAZIDE (HYDROCHLOROTHIAZIDE) (UNKNOWN) [Concomitant]
  6. LOSARTAN POTASSIUM (LOSARTAN POTASSIUM) [Concomitant]
  7. MECLIZINE HCL (MECLOZINE HYDROCHLORIDE) [Concomitant]
  8. OXYBUTYNIN CHLORIDE (OXYBUTYNIN HYDROCHLORIDE) (UNKNOWN) [Concomitant]
  9. MELOXICAM (MELOXICAM) [Concomitant]

REACTIONS (1)
  - Myocardial infarction [None]
